FAERS Safety Report 5428814-X (Version None)
Quarter: 2007Q3

REPORT INFORMATION
  Report Type: 
  Country: None (occurrence: None)
  Receive Date: 20070829
  Receipt Date: 20070207
  Transmission Date: 20080115
  Serious: No
  Sender: FDA-Public Use
  Company Number: A0631159A

PATIENT
  Age: 67 Year
  Sex: Female

DRUGS (1)
  1. ZOVIRAX [Suspect]
     Indication: VARICELLA
     Route: 061
     Dates: start: 20061212, end: 20061216

REACTIONS (3)
  - APPLICATION SITE IRRITATION [None]
  - DRUG INEFFECTIVE [None]
  - PHARMACEUTICAL PRODUCT COMPLAINT [None]
